FAERS Safety Report 12108942 (Version 1)
Quarter: 2016Q1

REPORT INFORMATION
  Report Type: Spontaneous
  Country: US (occurrence: None)
  Receive Date: 20160222
  Receipt Date: 20160222
  Transmission Date: 20160526
  Serious: Yes (Hospitalization)
  Sender: FDA-Public Use
  Company Number: None

PATIENT
  Age: 58 Year
  Sex: Female

DRUGS (8)
  1. FLUTICASONE [Concomitant]
     Active Substance: FLUTICASONE\FLUTICASONE PROPIONATE
  2. ENOXAPARIN [Suspect]
     Active Substance: ENOXAPARIN
     Indication: PULMONARY EMBOLISM
     Route: 058
     Dates: end: 20151213
  3. ALPRAZOLAM. [Concomitant]
     Active Substance: ALPRAZOLAM
  4. ALBUTEROL. [Concomitant]
     Active Substance: ALBUTEROL
  5. CHLORHEXADINE [Concomitant]
     Active Substance: CHLORHEXIDINE
  6. LISINOPRIL. [Concomitant]
     Active Substance: LISINOPRIL
  7. RANITIDINE [Concomitant]
     Active Substance: RANITIDINE\RANITIDINE HYDROCHLORIDE
  8. OXYCODONE [Concomitant]
     Active Substance: OXYCODONE

REACTIONS (5)
  - Pain in extremity [None]
  - Hypoaesthesia [None]
  - Haemorrhage [None]
  - Arthralgia [None]
  - Haematoma [None]

NARRATIVE: CASE EVENT DATE: 20151209
